FAERS Safety Report 7460888-7 (Version None)
Quarter: 2011Q2

REPORT INFORMATION
  Report Type: 
  Country: None (occurrence: None)
  Receive Date: 20110505
  Receipt Date: 20110422
  Transmission Date: 20111010
  Serious: Yes (Other)
  Sender: FDA-Public Use
  Company Number: JP-CELGENEUS-087-21880-11043152

PATIENT
  Sex: Male

DRUGS (17)
  1. SIGMART [Concomitant]
     Indication: ANGINA PECTORIS
     Dosage: 20 MILLIGRAM
     Route: 048
     Dates: start: 20090331
  2. REVLIMID [Suspect]
     Indication: PLASMACYTOMA
     Dosage: 10 MILLIGRAM
     Route: 048
     Dates: start: 20101119, end: 20101209
  3. MUCOSTA [Concomitant]
     Indication: PROPHYLAXIS
     Dosage: 300 MILLIGRAM
     Route: 048
     Dates: start: 20060919
  4. FRANDOL [Concomitant]
     Indication: ANGINA PECTORIS
     Dosage: 40 MILLIGRAM
     Route: 061
     Dates: start: 20100106
  5. OXINORM [Concomitant]
     Dosage: 5 MILLIGRAM
     Route: 048
     Dates: start: 20090602
  6. REVLIMID [Suspect]
     Dosage: 10 MILLIGRAM
     Route: 048
     Dates: start: 20110107, end: 20110310
  7. TAKEPRON [Concomitant]
     Indication: PROPHYLAXIS
     Dosage: 15 MILLIGRAM
     Route: 048
     Dates: start: 20061202
  8. LENDORMIN D [Concomitant]
     Indication: INSOMNIA
     Dosage: .5 MILLIGRAM
     Route: 048
     Dates: start: 20091006
  9. DUROTEP [Concomitant]
     Dosage: 6.3 MILLIGRAM
     Route: 061
     Dates: start: 20100108
  10. REVLIMID [Suspect]
     Dosage: 10 MILLIGRAM
     Route: 048
     Dates: start: 20101217, end: 20110106
  11. LENADEX [Suspect]
     Indication: MULTIPLE MYELOMA
     Dosage: 20 MILLIGRAM
     Route: 048
     Dates: start: 20101022, end: 20101112
  12. LENADEX [Suspect]
     Dosage: 20 MILLIGRAM
     Route: 048
     Dates: start: 20101119, end: 20110113
  13. MAGMITT [Concomitant]
     Indication: ANGINA PECTORIS
     Dosage: 990 MILLIGRAM
     Route: 048
     Dates: start: 20061205
  14. BAYMYCARD [Concomitant]
     Indication: ANGINA PECTORIS
     Dosage: 20 MILLIGRAM
     Route: 048
     Dates: start: 20100610
  15. ASPIRIN [Concomitant]
     Indication: PROPHYLAXIS
     Dosage: 100 MILLIGRAM
     Route: 048
     Dates: start: 20101021
  16. REVLIMID [Suspect]
     Indication: MULTIPLE MYELOMA
     Dosage: 10 MILLIGRAM
     Route: 048
     Dates: start: 20101022, end: 20101111
  17. ETODOLAC [Concomitant]
     Dosage: 400 MILLIGRAM
     Route: 048
     Dates: start: 20061206

REACTIONS (1)
  - LUNG NEOPLASM MALIGNANT [None]
